FAERS Safety Report 9103457 (Version 1)
Quarter: 2013Q1

REPORT INFORMATION
  Report Type: Spontaneous
  Country: CA (occurrence: CA)
  Receive Date: 20130219
  Receipt Date: 20130219
  Transmission Date: 20140127
  Serious: Yes (Other)
  Sender: FDA-Public Use
  Company Number: CA-BAYER-2013-018299

PATIENT
  Age: 47 Year
  Sex: Female

DRUGS (1)
  1. MIRENA [Suspect]
     Indication: CYST
     Dosage: 20 MCG/24HR, CONT
     Route: 015
     Dates: start: 20121113

REACTIONS (2)
  - Coeliac disease [None]
  - Off label use [None]
